FAERS Safety Report 4830565-7 (Version None)
Quarter: 2005Q4

REPORT INFORMATION
  Report Type: 
  Country: None (occurrence: None)
  Receive Date: 20051115
  Receipt Date: 20051101
  Transmission Date: 20060501
  Serious: Yes (Hospitalization, Other)
  Sender: FDA-Public Use
  Company Number: DEU-2005-0001688

PATIENT
  Age: 67 Year
  Sex: Female
  Weight: 46 kg

DRUGS (4)
  1. OXYCODONE HCL [Suspect]
     Indication: PHANTOM PAIN
     Dosage: 20 MG, QID, ORAL
     Route: 048
     Dates: start: 20050520, end: 20050619
  2. ANTIEPILEPTICS () [Suspect]
     Indication: PHANTOM PAIN
     Dosage: 75 MG, BID, ORAL
     Route: 048
     Dates: start: 20050501, end: 20050618
  3. AMOXICILLIN [Concomitant]
  4. CLAVULANIC ACID (CLAVULANIC ACID) [Concomitant]

REACTIONS (10)
  - BLOOD ALKALINE PHOSPHATASE INCREASED [None]
  - BLOOD CREATININE ABNORMAL [None]
  - CHOLESTASIS [None]
  - DEMENTIA [None]
  - GAMMA-GLUTAMYLTRANSFERASE INCREASED [None]
  - HALLUCINATION [None]
  - MUSCLE TWITCHING [None]
  - MYOCLONUS [None]
  - NERVOUS SYSTEM DISORDER [None]
  - TREMOR [None]
